FAERS Safety Report 9450513 (Version 1)
Quarter: 2013Q3

REPORT INFORMATION
  Report Type: Spontaneous
  Country: SE (occurrence: SE)
  Receive Date: 20130809
  Receipt Date: 20130809
  Transmission Date: 20140515
  Serious: Yes (Hospitalization)
  Sender: FDA-Public Use
  Company Number: SE-JNJFOC-20130800162

PATIENT
  Age: 74 Year
  Sex: Male

DRUGS (9)
  1. ZYTIGA [Suspect]
     Indication: PROSTATE CANCER METASTATIC
     Route: 048
     Dates: start: 20130525, end: 20130617
  2. PRIMPERAN [Concomitant]
     Route: 065
  3. BONDRONAT [Concomitant]
     Route: 065
  4. ACETYLCYSTEINE [Concomitant]
     Route: 065
  5. OMEPRAZOLE [Concomitant]
     Route: 065
  6. CALCICHEW-D3 [Concomitant]
     Route: 065
  7. PROPAVAN [Concomitant]
     Route: 065
  8. PROCREN [Concomitant]
     Route: 065
  9. PREDNISOLON [Concomitant]
     Route: 065

REACTIONS (1)
  - Thalamic infarction [Not Recovered/Not Resolved]
